FAERS Safety Report 25014417 (Version 2)
Quarter: 2025Q1

REPORT INFORMATION
  Report Type: Report from Study
  Country: HN (occurrence: HN)
  Receive Date: 20250226
  Receipt Date: 20250303
  Transmission Date: 20250409
  Serious: Yes (Hospitalization, Other)
  Sender: BAYER HEALTHCARE PHARMACEUTICALS INC.
  Company Number: HN-BAYER-2025A024213

PATIENT
  Age: 53 Year
  Sex: Female

DRUGS (4)
  1. NEXAVAR [Suspect]
     Active Substance: SORAFENIB
     Indication: Thyroid cancer metastatic
     Dosage: 600 MG, QD
     Dates: start: 20240614, end: 20241218
  2. NEXAVAR [Suspect]
     Active Substance: SORAFENIB
     Indication: Thyroid cancer metastatic
     Dosage: 600 MG, QD
     Dates: start: 20250114, end: 20250211
  3. METFORMIN [Concomitant]
     Active Substance: METFORMIN HYDROCHLORIDE
     Indication: Diabetes mellitus
  4. LANTUS [Concomitant]
     Active Substance: INSULIN GLARGINE
     Indication: Diabetes mellitus
     Dosage: 62 U, QD

REACTIONS (10)
  - Peripheral swelling [Recovering/Resolving]
  - Drug hypersensitivity [Recovering/Resolving]
  - Gait inability [Not Recovered/Not Resolved]
  - Peripheral swelling [Recovered/Resolved]
  - Burning sensation [Not Recovered/Not Resolved]
  - Oedema peripheral [Not Recovered/Not Resolved]
  - Blister [Recovering/Resolving]
  - Blood blister [Recovering/Resolving]
  - Blister [Recovering/Resolving]
  - Product use issue [None]

NARRATIVE: CASE EVENT DATE: 20240614
